FAERS Safety Report 6204409-5 (Version None)
Quarter: 2009Q2

REPORT INFORMATION
  Report Type: 
  Country: None (occurrence: None)
  Receive Date: 20090527
  Receipt Date: 20090428
  Transmission Date: 20091009
  Serious: Yes (Hospitalization)
  Sender: FDA-Public Use
  Company Number: US-PFIZER INC-2009202817

PATIENT
  Sex: Male
  Weight: 25.4 kg

DRUGS (18)
  1. VORICONAZOLE [Suspect]
     Indication: ANTIFUNGAL PROPHYLAXIS
     Dosage: 180 MG, 2X/DAY (Q12HR)
     Route: 042
     Dates: start: 20090317, end: 20090402
  2. VORICONAZOLE [Suspect]
     Dosage: 200 MG, 2X/DAY (Q12HR)
     Route: 048
     Dates: start: 20090403, end: 20090409
  3. ACYCLOVIR [Concomitant]
     Dosage: 235 MG, 2X/DAY
     Route: 042
     Dates: start: 20090316
  4. AMLODIPINE [Concomitant]
     Dosage: 5 MG, 2X/DAY
     Route: 048
     Dates: start: 20090407
  5. CEFEPIME [Concomitant]
     Dosage: 1250 MG, 3X/DAY
     Route: 042
     Dates: start: 20090319
  6. CYCLOSPORINE [Concomitant]
     Dosage: 72 MG, 1X/DAY
     Route: 042
     Dates: start: 20090313
  7. FILGRASTIM [Concomitant]
     Dosage: 125 MG, 1X/DAY
     Route: 042
     Dates: start: 20090317
  8. FUROSEMIDE [Concomitant]
     Dosage: 20 MG, 1X/DAY
     Route: 042
     Dates: start: 20090408
  9. HYDROCORTISONE [Concomitant]
     Dosage: UNK
     Route: 061
     Dates: start: 20090324
  10. IMMUNOGLOBULIN HUMAN NORMAL [Concomitant]
     Dosage: 136 MG, WEEKLY (EVERY TUSEDAY)
     Route: 042
     Dates: start: 20090328
  11. METHYLPREDNISOLONE [Concomitant]
     Dosage: 5 MG, 2X/DAY
     Route: 042
     Dates: start: 20090325
  12. MYCOPHENOLATE MOFETIL [Concomitant]
     Dosage: 400 MG, 3X/DAY
     Route: 042
     Dates: start: 20090313
  13. NYSTATIN [Concomitant]
     Dosage: 4 ML, 4X/DAY
     Route: 048
     Dates: start: 20090405
  14. ONDANSETRON [Concomitant]
     Dosage: 4 MG, 2X/DAY PRN (AS NEEDED)
     Route: 042
     Dates: start: 20090328
  15. PANTOPRAZOLE [Concomitant]
     Dosage: 30 MG, 2X/DAY
     Route: 042
     Dates: start: 20090326
  16. PROTOPIC [Concomitant]
     Dosage: UNK
     Route: 061
     Dates: start: 20090324
  17. URSODIOL [Concomitant]
     Dosage: 300 MG, 2X/DAY
     Route: 048
     Dates: start: 20090329
  18. LIPID EMULSION /USA/ [Concomitant]
     Dosage: UNK
     Route: 042
     Dates: start: 20090316, end: 20090413

REACTIONS (1)
  - TRANSPLANT REJECTION [None]
